FAERS Safety Report 18367637 (Version 1)
Quarter: 2020Q4

REPORT INFORMATION
  Report Type: Not Available
  Country: US (occurrence: US)
  Receive Date: 20201009
  Receipt Date: 20201009
  Transmission Date: 20210114
  Serious: No
  Sender: FDA-Public Use
  Company Number: US-C B FLEET CO INC-202006-US-002315

PATIENT
  Sex: Female

DRUGS (1)
  1. MONISTAT 7 COMBINATION PACK [Suspect]
     Active Substance: MICONAZOLE NITRATE
     Indication: FUNGAL INFECTION
     Dosage: COMPLETED 2 DAYS OF TREATMENT
     Route: 067
     Dates: end: 20200616

REACTIONS (3)
  - Headache [Not Recovered/Not Resolved]
  - Exposure during pregnancy [None]
  - Off label use [None]
